FAERS Safety Report 6282376-6 (Version None)
Quarter: 2009Q3

REPORT INFORMATION
  Report Type: 
  Country: None (occurrence: None)
  Receive Date: 20090724
  Receipt Date: 20090715
  Transmission Date: 20100115
  Serious: Yes (Other)
  Sender: FDA-Public Use
  Company Number: US-JNJCH-2009018935

PATIENT
  Age: 68 Year
  Sex: Male
  Weight: 163.7 kg

DRUGS (3)
  1. BENADRYL ALLERGY DYE-FREE [Suspect]
     Indication: PRURITUS
     Dosage: TEXT:1 SOFTGEL EVERY 4 HOURS
     Route: 048
  2. INSULIN [Concomitant]
     Indication: DIABETES MELLITUS
     Dosage: TEXT:UNKNOWN
     Route: 065
  3. ANTI-PARKINSON AGENTS [Concomitant]
     Indication: PARKINSON'S DISEASE
     Dosage: TEXT:UNKNOWN
     Route: 065

REACTIONS (3)
  - DIPLOPIA [None]
  - OFF LABEL USE [None]
  - VISION BLURRED [None]
